FAERS Safety Report 4435314-2 (Version None)
Quarter: 2004Q3

REPORT INFORMATION
  Report Type: 
  Country: None (occurrence: None)
  Receive Date: 20040827
  Receipt Date: 20040827
  Transmission Date: 20050211
  Serious: No
  Sender: FDA-Public Use
  Company Number: None

PATIENT
  Age: 41 Year
  Sex: Female
  Weight: 72.5755 kg

DRUGS (10)
  1. LOVENOX [Suspect]
     Indication: THROMBOSIS PROPHYLAXIS
     Dosage: 100 MG TWICE DAIL SQ
     Route: 058
     Dates: start: 20040806, end: 20040820
  2. ACIPHEX [Concomitant]
  3. MIRALAX [Concomitant]
  4. PLAQUENIL [Concomitant]
  5. HORMONE REPLACEMENT THERAPY [Concomitant]
  6. CELEBREX [Concomitant]
  7. ELAVIL [Concomitant]
  8. LEXAPRO [Concomitant]
  9. ATIVAN [Concomitant]
  10. PERCOCET [Concomitant]

REACTIONS (1)
  - SWOLLEN TONGUE [None]
